FAERS Safety Report 10877753 (Version 1)
Quarter: 2015Q1

REPORT INFORMATION
  Report Type: Spontaneous
  Country: US (occurrence: None)
  Receive Date: 20150224
  Receipt Date: 20150224
  Transmission Date: 20150721
  Serious: No
  Sender: FDA-Public Use
  Company Number: None

PATIENT
  Age: 61 Year
  Sex: Male
  Weight: 81.65 kg

DRUGS (15)
  1. COQ10 [Concomitant]
     Active Substance: UBIDECARENONE
  2. AMIODARONE 200 MG TEVA [Suspect]
     Active Substance: AMIODARONE
     Indication: HEART RATE IRREGULAR
     Dosage: 2 TIL 1/5 THEN ONLY DAILY
     Route: 048
     Dates: start: 20150129, end: 20150209
  3. AMIODARONE 200 MG TEVA [Suspect]
     Active Substance: AMIODARONE
     Indication: SINUS TACHYCARDIA
     Dosage: 2 TIL 1/5 THEN ONLY DAILY
     Route: 048
     Dates: start: 20150129, end: 20150209
  4. FISH OIL [Concomitant]
     Active Substance: FISH OIL
  5. PLAVIX [Concomitant]
     Active Substance: CLOPIDOGREL BISULFATE
  6. POTASSIUM [Concomitant]
     Active Substance: POTASSIUM
  7. FUROSEMIDE. [Concomitant]
     Active Substance: FUROSEMIDE
  8. METOPROLOL [Concomitant]
     Active Substance: METOPROLOL
  9. VITAMIN D3 [Concomitant]
     Active Substance: CHOLECALCIFEROL
  10. COLACE [Concomitant]
     Active Substance: DOCUSATE SODIUM
  11. MULTIVITAMIN WITH IRON [Concomitant]
     Active Substance: IRON\VITAMINS
  12. NIACIN. [Concomitant]
     Active Substance: NIACIN
  13. ASA [Concomitant]
     Active Substance: ASPIRIN
  14. ZETIA [Concomitant]
     Active Substance: EZETIMIBE
  15. LISINOPRIL. [Concomitant]
     Active Substance: LISINOPRIL

REACTIONS (3)
  - Dyspnoea [None]
  - Pulse abnormal [None]
  - Blood pressure abnormal [None]

NARRATIVE: CASE EVENT DATE: 20150129
